FAERS Safety Report 25639828 (Version 3)
Quarter: 2025Q4

REPORT INFORMATION
  Report Type: Spontaneous
  Country: EU (occurrence: EU)
  Receive Date: 20250804
  Receipt Date: 20251103
  Transmission Date: 20260117
  Serious: No
  Sender: PFIZER
  Company Number: EU-PFIZER INC-202500155395

PATIENT
  Sex: Female

DRUGS (1)
  1. MEDROXYPROGESTERONE [Suspect]
     Active Substance: MEDROXYPROGESTERONE
     Indication: Contraception
     Dosage: 104 MG, CYCLIC

REACTIONS (2)
  - Device occlusion [Unknown]
  - Device leakage [Unknown]
